FAERS Safety Report 24141077 (Version 1)
Quarter: 2024Q3

REPORT INFORMATION
  Report Type: Spontaneous
  Country: PL (occurrence: PL)
  Receive Date: 20240726
  Receipt Date: 20240726
  Transmission Date: 20241017
  Serious: Yes (Other)
  Sender: AUROBINDO
  Company Number: PL-URPL-DML-MLP.4401.1.4939.2021

PATIENT
  Age: 53 Year
  Sex: Female
  Weight: 62 kg

DRUGS (1)
  1. BENDAMUSTINE [Suspect]
     Active Substance: BENDAMUSTINE
     Indication: Waldenstrom^s macroglobulinaemia
     Dosage: 150 MILLIGRAM
     Route: 042
     Dates: start: 20210713, end: 20210713

REACTIONS (6)
  - Eyelid oedema [Recovering/Resolving]
  - Chest pain [Recovering/Resolving]
  - C-reactive protein increased [Recovering/Resolving]
  - Hypotension [Recovering/Resolving]
  - Procalcitonin increased [Recovering/Resolving]
  - Restlessness [Recovering/Resolving]
